FAERS Safety Report 26197850 (Version 1)
Quarter: 2025Q4

REPORT INFORMATION
  Report Type: Report from Study
  Country: US (occurrence: US)
  Receive Date: 20251224
  Receipt Date: 20251224
  Transmission Date: 20260117
  Serious: Yes (Hospitalization)
  Sender: TAIHO ONCOLOGY INC
  Company Number: US-TAIHOP-2025-013042

PATIENT
  Age: 82 Year
  Sex: Male
  Weight: 88.0 kg

DRUGS (2)
  1. INQOVI [Suspect]
     Active Substance: CEDAZURIDINE\DECITABINE
     Indication: Myelodysplastic syndrome
     Dosage: 135MG (DECITABINE 35 MG AND CEDAZURIDINE 100 MG) DAYS 1-5 OF EACH 35 DAY CYCLE.?CYCLE 47
     Route: 048
     Dates: start: 20210517
  2. ACEBUTOLOL [Concomitant]
     Active Substance: ACEBUTOLOL
     Indication: Product used for unknown indication

REACTIONS (2)
  - Heart rate decreased [Unknown]
  - Blood pressure abnormal [Unknown]
